FAERS Safety Report 4637412-7 (Version None)
Quarter: 2005Q2

REPORT INFORMATION
  Report Type: 
  Country: None (occurrence: None)
  Receive Date: 20050418
  Receipt Date: 20050125
  Transmission Date: 20051028
  Serious: No
  Sender: FDA-Public Use
  Company Number: US-BRISTOL-MYERS SQUIBB COMPANY-12838660

PATIENT
  Age: 65 Year
  Sex: Female
  Weight: 53 kg

DRUGS (11)
  1. HYDREA [Suspect]
     Indication: POLYCYTHAEMIA VERA
     Dosage: DOSAGE INCREASED TO 1000 MG 3X/WEEK AND 1500 MG 4X/WEEK
     Route: 048
     Dates: start: 19970101
  2. ASPIRIN [Concomitant]
  3. PREMARIN [Concomitant]
  4. METOPROLOL TARTRATE [Concomitant]
  5. VITAMIN C [Concomitant]
  6. VITAMIN E [Concomitant]
  7. PRIMROSE OIL [Concomitant]
  8. VITAMIN B-12 [Concomitant]
  9. FOLIC ACID [Concomitant]
  10. CALCIUM GLUCONATE [Concomitant]
  11. MAGNESIUM [Concomitant]

REACTIONS (1)
  - ALOPECIA [None]
